FAERS Safety Report 8203773-5 (Version None)
Quarter: 2012Q1

REPORT INFORMATION
  Report Type: 
  Country: None (occurrence: None)
  Receive Date: 20120313
  Receipt Date: 20120305
  Transmission Date: 20120608
  Serious: Yes (Hospitalization, Other)
  Sender: FDA-Public Use
  Company Number: US-BAYER-2011-088229

PATIENT
  Sex: Female
  Weight: 63.039 kg

DRUGS (3)
  1. DROSPIRENONE AND ETHINYL ESTRADIOL [Suspect]
     Dosage: UNK
     Dates: start: 20080701, end: 20100101
  2. CYMBALTA [Concomitant]
     Dosage: 60 MG, QD
  3. YASMIN [Suspect]
     Dosage: UNK
     Dates: start: 20070401, end: 20100101

REACTIONS (5)
  - GALLBLADDER INJURY [None]
  - INJURY [None]
  - PAIN [None]
  - CHOLECYSTITIS CHRONIC [None]
  - ABDOMINAL PAIN [None]
